FAERS Safety Report 16005770 (Version 2)
Quarter: 2024Q3

REPORT INFORMATION
  Report Type: Spontaneous
  Country: IT (occurrence: IT)
  Receive Date: 20190226
  Receipt Date: 20240808
  Transmission Date: 20241016
  Serious: Yes (Death, Life-Threatening, Hospitalization)
  Sender: EMD SERONO INC
  Company Number: None

PATIENT
  Age: 81 Year
  Sex: Female
  Weight: 81 kg

DRUGS (1)
  1. AVELUMAB [Suspect]
     Active Substance: AVELUMAB
     Indication: Neuroendocrine carcinoma of the skin
     Route: 042
     Dates: start: 20190205, end: 20190205

REACTIONS (4)
  - Cardiac failure [Fatal]
  - Respiratory failure [Fatal]
  - Altered state of consciousness [Not Recovered/Not Resolved]
  - Atrial fibrillation [Not Recovered/Not Resolved]

NARRATIVE: CASE EVENT DATE: 20190205
